FAERS Safety Report 25041189 (Version 1)
Quarter: 2025Q1

REPORT INFORMATION
  Report Type: Spontaneous
  Country: CN (occurrence: CN)
  Receive Date: 20250305
  Receipt Date: 20250305
  Transmission Date: 20250409
  Serious: Yes (Other)
  Sender: BAXTER
  Company Number: None

PATIENT
  Age: 58 Year
  Sex: Female
  Weight: 63 kg

DRUGS (2)
  1. MANNITOL [Suspect]
     Active Substance: MANNITOL
     Indication: Peripheral swelling
     Route: 041
     Dates: start: 20250219, end: 20250219
  2. MANNITOL [Suspect]
     Active Substance: MANNITOL
     Indication: Radius fracture

REACTIONS (5)
  - Tachypnoea [Recovering/Resolving]
  - Respiratory rate increased [Recovering/Resolving]
  - Chest discomfort [Recovering/Resolving]
  - Hypertension [Recovering/Resolving]
  - Chills [Recovering/Resolving]

NARRATIVE: CASE EVENT DATE: 20250219
